FAERS Safety Report 25726729 (Version 4)
Quarter: 2025Q4

REPORT INFORMATION
  Report Type: Spontaneous
  Country: CA (occurrence: CA)
  Receive Date: 20250826
  Receipt Date: 20251106
  Transmission Date: 20260117
  Serious: Yes (Other)
  Sender: PFIZER
  Company Number: CA-PFIZER INC-202500167359

PATIENT
  Age: 60 Year
  Sex: Female
  Weight: 95 kg

DRUGS (3)
  1. IXIFI [Suspect]
     Active Substance: INFLIXIMAB-QBTX
     Indication: Crohn^s disease
     Dosage: 900 MG, EVERY 6 WEEKS (INDUCTION WEEK 0, 2, 6 THEN MAINTENANCE EVERY 8 WEEKS)
     Route: 042
     Dates: start: 20250710
  2. IXIFI [Suspect]
     Active Substance: INFLIXIMAB-QBTX
     Dosage: 900 MG, EVERY 6 WEEKS (INDUCTION WEEK 0, 2, 6 THEN MAINTENANCE EVERY 8 WEEKS)
     Route: 042
     Dates: start: 20250723
  3. IXIFI [Suspect]
     Active Substance: INFLIXIMAB-QBTX
     Dosage: 900 MG, EVERY 6 WEEKS (INDUCTION WEEK 0,2,6 THEN MAINTENANCE EVERY 8 WEEKS)
     Route: 042
     Dates: start: 20250819

REACTIONS (6)
  - Salpingo-oophorectomy bilateral [Not Recovered/Not Resolved]
  - Impaired healing [Recovering/Resolving]
  - Postoperative wound infection [Recovering/Resolving]
  - Pain in extremity [Unknown]
  - Musculoskeletal stiffness [Unknown]
  - Drug specific antibody present [Unknown]

NARRATIVE: CASE EVENT DATE: 20250101
